FAERS Safety Report 4284759-2 (Version None)
Quarter: 2004Q1

REPORT INFORMATION
  Report Type: 
  Country: None (occurrence: None)
  Receive Date: 20040130
  Receipt Date: 20040107
  Transmission Date: 20041129
  Serious: Yes (Hospitalization)
  Sender: FDA-Public Use
  Company Number: JP_030400671

PATIENT
  Age: 25 Year
  Sex: Male
  Weight: 58 kg

DRUGS (8)
  1. OLANZAPINE [Suspect]
     Indication: SCHIZOPHRENIA, PARANOID TYPE
     Dosage: 10 MG/1 DAY
     Dates: start: 20020902
  2. ZOTEPINE [Concomitant]
  3. BIPERIDEN HYDROCHLORIDE TAB [Concomitant]
  4. FLUNITRAZEPAM [Concomitant]
  5. BROTIZOLAM [Concomitant]
  6. TIMIPERONE [Concomitant]
  7. ALPRAZOLAM [Concomitant]
  8. CHLORPROMAZINE [Concomitant]

REACTIONS (5)
  - CONSTIPATION [None]
  - DELUSION [None]
  - HALLUCINATION [None]
  - RASH [None]
  - URINARY RETENTION [None]
